FAERS Safety Report 9691404 (Version 2)
Quarter: 2013Q4

REPORT INFORMATION
  Report Type: Report from Study
  Country: US (occurrence: US)
  Receive Date: 20131115
  Receipt Date: 20131115
  Transmission Date: 20140711
  Serious: Yes (Hospitalization)
  Sender: FDA-Public Use
  Company Number: US-ABBVIE-13P-163-1115349-00

PATIENT
  Sex: Male

DRUGS (4)
  1. HUMIRA [Suspect]
     Indication: COLITIS ULCERATIVE
     Dosage: FOUR PENS ON DAY ONE
     Route: 058
     Dates: start: 20130626
  2. HUMIRA [Suspect]
     Dosage: TWO PENS
  3. HUMIRA [Suspect]
     Route: 058
  4. PREDNISONE [Suspect]
     Indication: PRODUCT USED FOR UNKNOWN INDICATION

REACTIONS (2)
  - Epilepsy [Not Recovered/Not Resolved]
  - Eczema [Not Recovered/Not Resolved]
